FAERS Safety Report 26065740 (Version 1)
Quarter: 2025Q4

REPORT INFORMATION
  Report Type: Spontaneous
  Country: US (occurrence: None)
  Receive Date: 20251119
  Receipt Date: 20251119
  Transmission Date: 20260118
  Serious: Yes (Disabling)
  Sender: FDA-CTU
  Company Number: None

PATIENT
  Age: 9 Year
  Sex: Male
  Weight: 32.4 kg

DRUGS (9)
  1. SERTRALINE [Suspect]
     Active Substance: SERTRALINE HYDROCHLORIDE
     Indication: Anxiety
     Dosage: OTHER QUANTITY : 1 TABLET(S);?FREQUENCY : AT BEDTIME;?
     Route: 048
     Dates: start: 20251030, end: 20251113
  2. FOCALIN XR [Suspect]
     Active Substance: DEXMETHYLPHENIDATE HYDROCHLORIDE
  3. FOCALIN [Suspect]
     Active Substance: DEXMETHYLPHENIDATE HYDROCHLORIDE
  4. GUANFACINE ER [Suspect]
     Active Substance: GUANFACINE HYDROCHLORIDE
  5. DEXMETHYLPHENIDATE [Concomitant]
     Active Substance: DEXMETHYLPHENIDATE
  6. Dexmethylphenidate 10mg Tablets [Concomitant]
  7. Guanfacine ER 4mg Tablets [Concomitant]
  8. Loratadine 10mg Tablets [Concomitant]
  9. Vitamin D 50mcg Gummies [Concomitant]

REACTIONS (11)
  - Fatigue [None]
  - Somnolence [None]
  - Limb discomfort [None]
  - Headache [None]
  - Muscle spasms [None]
  - Body temperature increased [None]
  - Blood pressure increased [None]
  - Hyperhidrosis [None]
  - Aggression [None]
  - Confusional state [None]
  - Delirium [None]

NARRATIVE: CASE EVENT DATE: 20251103
